FAERS Safety Report 9706466 (Version 2)
Quarter: 2016Q2

REPORT INFORMATION
  Report Type: Report from Study
  Country: FR (occurrence: FR)
  Receive Date: 20131125
  Receipt Date: 20160408
  Transmission Date: 20160815
  Serious: Yes (Hospitalization, Other)
  Sender: FDA-Public Use
  Company Number: FR-ROCHE-1303366

PATIENT

DRUGS (4)
  1. DIPHENHYDRAMINE. [Concomitant]
     Active Substance: DIPHENHYDRAMINE
     Route: 042
  2. RITUXIMAB [Suspect]
     Active Substance: RITUXIMAB
     Indication: DIFFUSE LARGE B-CELL LYMPHOMA
     Dosage: FROM WEEKS 1-4 FOLLOWED BY 4 BIWEEKLY DOSES ON WEEKS 6, 8, 10 AND 12.
     Route: 042
  3. SAR3419 (ANTI-CD19-DM4 IMMUNOCONJUGATE) [Suspect]
     Active Substance: COLTUXIMAB RAVTANSINE
     Indication: DIFFUSE LARGE B-CELL LYMPHOMA
     Dosage: FROM WEEKS 1-4 FOLLOWED BY 4 BIWEEKLY DOSES ON WEEKS 6, 8, 10 AND 12.
     Route: 042
  4. ACETAMINOPHEN. [Concomitant]
     Active Substance: ACETAMINOPHEN
     Dosage: 30-45 MIN BEFORE THE INFUSION.
     Route: 048

REACTIONS (18)
  - Diarrhoea [Unknown]
  - Dyspnoea [Unknown]
  - Gastrointestinal haemorrhage [Unknown]
  - Back pain [Unknown]
  - Blood creatinine abnormal [Unknown]
  - Aspartate aminotransferase increased [Unknown]
  - Abdominal pain [Unknown]
  - Leukopenia [Unknown]
  - Syncope [Unknown]
  - Asthenia [Unknown]
  - Sinus tachycardia [Unknown]
  - Neutropenia [Unknown]
  - Anaemia [Unknown]
  - Blood alkaline phosphatase abnormal [Unknown]
  - Thrombocytopenia [Unknown]
  - Weight decreased [Unknown]
  - Lymphopenia [Unknown]
  - General physical health deterioration [Unknown]
